FAERS Safety Report 8217651-9 (Version None)
Quarter: 2012Q1

REPORT INFORMATION
  Report Type: 
  Country: None (occurrence: None)
  Receive Date: 20120315
  Receipt Date: 20120229
  Transmission Date: 20120608
  Serious: Yes (Hospitalization)
  Sender: FDA-Public Use
  Company Number: B0784848A

PATIENT
  Sex: Male
  Weight: 13.0636 kg

DRUGS (7)
  1. ONDANSETRON HCL [Suspect]
     Indication: VOMITING
     Dates: start: 20111102
  2. THIOTEPA [Suspect]
     Indication: BRAIN NEOPLASM MALIGNANT
     Dosage: CYCLIC / INTRAVENOUS
     Route: 042
     Dates: start: 20111030, end: 20111101
  3. CARBOPLATIN [Suspect]
     Indication: BRAIN NEOPLASM MALIGNANT
     Dosage: CYCLIC / INTRAVENOUS
     Route: 042
     Dates: start: 20111027, end: 20111029
  4. ALIZAPRIDE HYDROCHLORIDE (FORMULATION UNKNOWN) (ALIZAPRIDE HYDROCHLORI [Suspect]
     Indication: VOMITING
     Dates: start: 20111102
  5. CEFTAZIDIME SODIUM [Suspect]
     Indication: PRODUCT USED FOR UNKNOWN INDICATION
     Dosage: 430 MG / THREE TIMES PER DAY
     Dates: start: 20111102
  6. KABIVEN [Suspect]
     Indication: ENTERAL NUTRITION
     Dates: start: 20111102
  7. VANCOMYCIN HCL [Suspect]
     Indication: PRODUCT USED FOR UNKNOWN INDICATION
     Dosage: 135 MG / FOUR TIMES PER DAY
     Dates: start: 20111102

REACTIONS (7)
  - DIARRHOEA [None]
  - QUADRIPARESIS [None]
  - DECREASED APPETITE [None]
  - TREMOR [None]
  - MUCOSAL INFLAMMATION [None]
  - VOMITING [None]
  - HYPOTONIA [None]
